FAERS Safety Report 6365450-5 (Version None)
Quarter: 2009Q3

REPORT INFORMATION
  Report Type: 
  Country: None (occurrence: None)
  Receive Date: 20090919
  Receipt Date: 20090814
  Transmission Date: 20100115
  Serious: No
  Sender: FDA-Public Use
  Company Number: US-ABBOTT-09P-163-0591516-00

PATIENT
  Sex: Female
  Weight: 72.64 kg

DRUGS (1)
  1. HUMIRA [Suspect]
     Indication: PSORIATIC ARTHROPATHY
     Dates: start: 20090714

REACTIONS (8)
  - BLOOD PRESSURE INCREASED [None]
  - DRUG INEFFECTIVE [None]
  - HAEMORRHOIDAL HAEMORRHAGE [None]
  - NERVOUSNESS [None]
  - OEDEMA PERIPHERAL [None]
  - PALPITATIONS [None]
  - POLLAKIURIA [None]
  - VAGINAL HAEMORRHAGE [None]
